FAERS Safety Report 16702230 (Version 1)
Quarter: 2019Q4

REPORT INFORMATION
  Report Type: Spontaneous
  Country: US (occurrence: US)
  Receive Date: 20190813
  Receipt Date: 20190813
  Transmission Date: 20200122
  Serious: No
  Sender: FDA-Public Use
  Company Number: None

PATIENT
  Age: 80 Year
  Sex: Female
  Weight: 99 kg

DRUGS (10)
  1. EXEMESTANE. [Concomitant]
     Active Substance: EXEMESTANE
  2. MONTELUKAST [Concomitant]
     Active Substance: MONTELUKAST SODIUM
  3. ZYRTEC [Concomitant]
     Active Substance: CETIRIZINE HYDROCHLORIDE
  4. CENTRUM SILVER [Concomitant]
     Active Substance: MINERALS\VITAMINS
  5. VITAMIN C [Concomitant]
     Active Substance: ASCORBIC ACID
  6. ADVAIR DISKUS [Concomitant]
     Active Substance: FLUTICASONE PROPIONATE\SALMETEROL XINAFOATE
  7. NASACORT [Concomitant]
     Active Substance: TRIAMCINOLONE ACETONIDE
  8. VIT D 3 [Concomitant]
  9. OLMESARTAN MEDOXODIL HCTZ. 20-12.5 TABS [Suspect]
     Active Substance: HYDROCHLOROTHIAZIDE\OLMESARTAN MEDOXOMIL
     Indication: HYPERTENSION
     Dosage: ??          QUANTITY:1 TABLET(S);?
     Route: 048
  10. CITRICAL [Concomitant]
     Active Substance: CALCIUM CITRATE

REACTIONS (7)
  - Drug ineffective [None]
  - Product quality issue [None]
  - Therapeutic product effect variable [None]
  - Product substitution issue [None]
  - Headache [None]
  - Depressed mood [None]
  - Tension headache [None]

NARRATIVE: CASE EVENT DATE: 20190811
